FAERS Safety Report 9525707 (Version 1)
Quarter: 2013Q3

REPORT INFORMATION
  Report Type: Spontaneous
  Country: US (occurrence: US)
  Receive Date: 20130916
  Receipt Date: 20130916
  Transmission Date: 20140515
  Serious: No
  Sender: FDA-Public Use
  Company Number: US-009507513-1309USA004242

PATIENT
  Sex: Female

DRUGS (6)
  1. EMEND [Suspect]
     Indication: NAUSEA
     Dosage: CYCLE 1
     Route: 042
  2. EMEND [Suspect]
     Indication: VOMITING
     Dosage: CYCLE 2
     Route: 042
  3. EMEND [Suspect]
     Dosage: CYCLE 3
     Route: 042
     Dates: start: 20130909
  4. EMEND [Suspect]
     Indication: VOMITING
     Dosage: CYCLE 1
     Route: 048
  5. EMEND [Suspect]
     Indication: NAUSEA
     Dosage: CYCLE 2
     Route: 048
  6. EMEND [Suspect]
     Dosage: CYCLE 3
     Route: 048
     Dates: start: 20130909

REACTIONS (3)
  - Inappropriate schedule of drug administration [Unknown]
  - Overdose [Unknown]
  - No adverse event [Unknown]
